FAERS Safety Report 11510131 (Version 1)
Quarter: 2015Q3

REPORT INFORMATION
  Report Type: Spontaneous
  Country: US (occurrence: US)
  Receive Date: 20150915
  Receipt Date: 20150915
  Transmission Date: 20151125
  Serious: No
  Sender: FDA-Public Use
  Company Number: US-JNJFOC-20150700247

PATIENT
  Age: 24 Year
  Sex: Male
  Weight: 145.15 kg

DRUGS (1)
  1. TYLENOL EXTRA STRENGTH [Suspect]
     Active Substance: ACETAMINOPHEN
     Indication: HEADACHE
     Dosage: 2 CAPLETS EVERY 4-6 HOURS
     Route: 048

REACTIONS (2)
  - Extra dose administered [Unknown]
  - Drug ineffective [Unknown]
